FAERS Safety Report 6799604 (Version 5)
Quarter: 2014Q3

REPORT INFORMATION
  Report Type: Spontaneous
  Country: US (occurrence: US)
  Receive Date: 20081030
  Receipt Date: 20140718
  Transmission Date: 20150326
  Serious: Yes (Hospitalization, Other)
  Sender: FDA-Public Use
  Company Number: US-BAYER-200836495NA

PATIENT
  Age: 21 Year
  Sex: Female
  Weight: 84.91 kg

DRUGS (1)
  1. MIRENA [Suspect]
     Active Substance: LEVONORGESTREL
     Dosage: 20 MCG/24HR, CONT
     Route: 015
     Dates: start: 20071002, end: 20081024

REACTIONS (10)
  - Medical device discomfort [Not Recovered/Not Resolved]
  - Abdominal discomfort [Unknown]
  - Injury [Not Recovered/Not Resolved]
  - Ovarian cyst [Unknown]
  - Embedded device [Not Recovered/Not Resolved]
  - Medical device pain [None]
  - Procedural pain [Not Recovered/Not Resolved]
  - Abdominal pain upper [None]
  - Uterine perforation [None]
  - Pain [Not Recovered/Not Resolved]

NARRATIVE: CASE EVENT DATE: 20080909
